FAERS Safety Report 8333577-4 (Version None)
Quarter: 2012Q2

REPORT INFORMATION
  Report Type: 
  Country: None (occurrence: None)
  Receive Date: 20120503
  Receipt Date: 20120424
  Transmission Date: 20120825
  Serious: Yes (Other)
  Sender: FDA-Public Use
  Company Number: PHHY2012BR036288

PATIENT
  Sex: Female

DRUGS (1)
  1. DICLOFENAC SODIUM [Suspect]
     Indication: TOOTHACHE
     Route: 048
     Dates: start: 20070101

REACTIONS (2)
  - TOOTH ABSCESS [None]
  - INFLAMMATION [None]
